FAERS Safety Report 6047520-4 (Version None)
Quarter: 2009Q1

REPORT INFORMATION
  Report Type: 
  Country: None (occurrence: None)
  Receive Date: 20090123
  Receipt Date: 20090116
  Transmission Date: 20090719
  Serious: Yes (Hospitalization)
  Sender: FDA-Public Use
  Company Number: US-RANBAXY-2009RR-20522

PATIENT
  Age: 79 Year
  Sex: Male

DRUGS (7)
  1. SERTRALINE [Suspect]
     Dosage: 100 MG, QD
  2. SERTRALINE [Concomitant]
     Indication: MAJOR DEPRESSION
     Dosage: 25 MG, QD
  3. SERTRALINE [Concomitant]
     Dosage: 50 MG, QD
  4. ALLOPURINOL [Concomitant]
  5. FELODIPINE [Concomitant]
  6. LOVASTATIN [Concomitant]
  7. OMEPRAZOLE [Concomitant]

REACTIONS (1)
  - SLEEP INERTIA [None]
